FAERS Safety Report 4532238-7 (Version None)
Quarter: 2004Q4

REPORT INFORMATION
  Report Type: 
  Country: None (occurrence: None)
  Receive Date: 20041217
  Receipt Date: 20041206
  Transmission Date: 20050328
  Serious: Yes (Other)
  Sender: FDA-Public Use
  Company Number: K200401860

PATIENT
  Age: 44 Year
  Sex: Female

DRUGS (10)
  1. TIGAN [Suspect]
     Indication: NAUSEA
  2. LEXAPRO (ESCITALOPRAM OXALATE) 20 MG [Suspect]
     Indication: GENERALISED ANXIETY DISORDER
     Dosage: SEE IMAGE
     Route: 048
     Dates: start: 20040101, end: 20040101
  3. LEXAPRO (ESCITALOPRAM OXALATE) 20 MG [Suspect]
     Indication: GENERALISED ANXIETY DISORDER
     Dosage: SEE IMAGE
     Route: 048
     Dates: start: 20040601, end: 20040101
  4. LEXAPRO (ESCITALOPRAM OXALATE) 20 MG [Suspect]
     Indication: GENERALISED ANXIETY DISORDER
     Dosage: SEE IMAGE
     Route: 048
     Dates: start: 20040101, end: 20040901
  5. LEXAPRO (ESCITALOPRAM OXALATE) 20 MG [Suspect]
     Indication: GENERALISED ANXIETY DISORDER
     Dosage: SEE IMAGE
     Route: 048
     Dates: start: 20040901
  6. FENTANYL [Concomitant]
  7. KLONOPIN [Concomitant]
  8. TRAZODONE (TRAZODONE) [Concomitant]
  9. VICODIN [Concomitant]
  10. ESTROGEN NOS (ESTROGEN NOS) [Concomitant]

REACTIONS (14)
  - AMNESIA [None]
  - APHASIA [None]
  - CONFUSIONAL STATE [None]
  - DEPRESSED LEVEL OF CONSCIOUSNESS [None]
  - DISORIENTATION [None]
  - DRUG INTERACTION [None]
  - ELECTROENCEPHALOGRAM ABNORMAL [None]
  - EYE ROLLING [None]
  - FATIGUE [None]
  - FEAR [None]
  - HEADACHE [None]
  - MENTAL IMPAIRMENT [None]
  - PARTIAL SEIZURES [None]
  - TARDIVE DYSKINESIA [None]
